FAERS Safety Report 4865372-2 (Version None)
Quarter: 2005Q4

REPORT INFORMATION
  Report Type: 
  Country: None (occurrence: None)
  Receive Date: 20051220
  Receipt Date: 20051220
  Transmission Date: 20060501
  Serious: Yes (Hospitalization, Disabling, Other)
  Sender: FDA-Public Use
  Company Number: None

PATIENT
  Age: 51 Year
  Sex: Female

DRUGS (11)
  1. CORICIDIN D TABLETS [Suspect]
     Indication: HYPERSENSITIVITY
     Dosage: 2 TABS ORAL
     Route: 048
     Dates: start: 19961219, end: 19961219
  2. CORICIDIN D TABLETS [Suspect]
     Indication: NASOPHARYNGITIS
     Dosage: 2 TABS ORAL
     Route: 048
     Dates: start: 19961219, end: 19961219
  3. CONTAC TABLETS [Suspect]
     Indication: HYPERSENSITIVITY
     Dosage: 1 CAP ORAL
     Route: 048
     Dates: start: 19961218, end: 19961218
  4. CONTAC TABLETS [Suspect]
     Indication: NASOPHARYNGITIS
     Dosage: 1 CAP ORAL
     Route: 048
     Dates: start: 19961218, end: 19961218
  5. ALLEREST TABLETS [Suspect]
     Indication: HYPERSENSITIVITY
     Dosage: ONE CAP ORAL
     Route: 048
     Dates: start: 19961217, end: 19961217
  6. ALLEREST TABLETS [Suspect]
     Indication: NASOPHARYNGITIS
     Dosage: ONE CAP ORAL
     Route: 048
     Dates: start: 19961217, end: 19961217
  7. ROBITUSSIN-CF SYRUP [Suspect]
     Indication: HYPERSENSITIVITY
     Dosage: 1 TSP ORAL
     Route: 048
     Dates: start: 19961219, end: 19961219
  8. ROBITUSSIN-CF SYRUP [Suspect]
     Indication: NASOPHARYNGITIS
     Dosage: 1 TSP ORAL
     Route: 048
     Dates: start: 19961219, end: 19961219
  9. ANTICOAGULANTS [Concomitant]
  10. PROVERA [Concomitant]
  11. PREMARIN [Concomitant]

REACTIONS (5)
  - ISCHAEMIC STROKE [None]
  - MALAISE [None]
  - SIMPLE PARTIAL SEIZURES [None]
  - SINUS CONGESTION [None]
  - TONIC CONVULSION [None]
